FAERS Safety Report 13104348 (Version 1)
Quarter: 2017Q1

REPORT INFORMATION
  Report Type: Spontaneous
  Country: US (occurrence: US)
  Receive Date: 20170111
  Receipt Date: 20170111
  Transmission Date: 20170428
  Serious: No
  Sender: FDA-Public Use
  Company Number: US-ELI_LILLY_AND_COMPANY-US201701002176

PATIENT
  Sex: Male

DRUGS (1)
  1. STRATTERA [Suspect]
     Active Substance: ATOMOXETINE HYDROCHLORIDE
     Indication: ATTENTION DEFICIT/HYPERACTIVITY DISORDER
     Dosage: 10 MG, UNKNOWN
     Route: 065
     Dates: start: 20170103

REACTIONS (8)
  - Hypophagia [Unknown]
  - Nausea [Unknown]
  - Expired product administered [Unknown]
  - Cough [Unknown]
  - Influenza [Unknown]
  - Malaise [Unknown]
  - Somnolence [Unknown]
  - Paraesthesia [Not Recovered/Not Resolved]
